FAERS Safety Report 18777858 (Version 1)
Quarter: 2021Q1

REPORT INFORMATION
  Report Type: Spontaneous
  Country: US (occurrence: US)
  Receive Date: 20210122
  Receipt Date: 20210122
  Transmission Date: 20210419
  Serious: No
  Sender: FDA-Public Use
  Company Number: 2020SGN03241

PATIENT
  Age: 68 Year
  Sex: Female

DRUGS (3)
  1. TUKYSA [Suspect]
     Active Substance: TUCATINIB
     Indication: BREAST CANCER FEMALE
     Dosage: 150 MG, BID
  2. HERCEPTIN [Concomitant]
     Active Substance: TRASTUZUMAB
     Indication: BREAST CANCER FEMALE
     Dosage: UNK, Q3WEEKS
  3. XELODA [Concomitant]
     Active Substance: CAPECITABINE
     Dosage: UNK, BID

REACTIONS (11)
  - Urine odour abnormal [Unknown]
  - Renal pain [Unknown]
  - Muscle spasms [Unknown]
  - Diarrhoea [Unknown]
  - Wrong technique in product usage process [Unknown]
  - Product dose omission issue [Unknown]
  - Blood calcium decreased [Unknown]
  - Pruritus [Unknown]
  - Product dose omission issue [Unknown]
  - Nausea [Unknown]
  - Gastrooesophageal reflux disease [Unknown]

NARRATIVE: CASE EVENT DATE: 20200917
